FAERS Safety Report 23344735 (Version 1)
Quarter: 2023Q4

REPORT INFORMATION
  Report Type: Spontaneous
  Country: CH (occurrence: CH)
  Receive Date: 20231228
  Receipt Date: 20231228
  Transmission Date: 20240109
  Serious: Yes (Hospitalization, Other)
  Sender: FDA-Public Use
  Company Number: None

PATIENT

DRUGS (9)
  1. INFLECTRA [Suspect]
     Active Substance: INFLIXIMAB-DYYB
     Indication: Polyarthritis
     Dosage: 300 MG, EVERY 4 WEEKS
     Route: 042
     Dates: start: 202205, end: 202307
  2. PERINDOPRIL AMLODIPIN MEPHA [Concomitant]
     Dosage: UNK, QD
     Route: 048
     Dates: start: 202212
  3. BLACK COHOSH [Concomitant]
     Active Substance: BLACK COHOSH
     Dosage: 13 MG, 1X/DAY (1-0-0-0)
     Route: 048
     Dates: start: 202212
  4. FENTANYL MEPHA [FENTANYL] [Concomitant]
     Dosage: 25 MCG/H 0.25-0-0-0-0, FREQ: EVERY 96 HOUR
     Route: 061
     Dates: start: 202212
  5. FELDEN [NICOTINAMIDE;PIROXICAM] [Concomitant]
     Dosage: 20 MG, AS NEEDED
     Route: 048
     Dates: start: 202212
  6. PREDNISOLONE [Concomitant]
     Active Substance: PREDNISOLONE
     Dosage: 20 MG, AS NEEDED (20 MG, 1-2X/MONTH FOR MULTIPLE YEARS)
  7. PANTOPRAZOLE SODIUM [Concomitant]
     Active Substance: PANTOPRAZOLE SODIUM
     Dosage: 40 MG (P.O. 1-0-1-0)
     Route: 048
     Dates: start: 20230428
  8. MAGNESIUM DIASPORAL [MAGNESIUM CITRATE] [Concomitant]
     Dosage: 300 MG (P.O. 1-0-0-0)
     Route: 048
     Dates: start: 20230428
  9. FLECTOR [Concomitant]
     Active Substance: DICLOFENAC EPOLAMINE
     Dosage: UNK, PRN
     Route: 061
     Dates: start: 20230516

REACTIONS (10)
  - Polyserositis [Recovering/Resolving]
  - Pericarditis [Recovering/Resolving]
  - Pleurisy [Recovering/Resolving]
  - Gastrointestinal disorder [Unknown]
  - Normochromic normocytic anaemia [Unknown]
  - Pleural effusion [Unknown]
  - Nausea [Unknown]
  - Off label use [Unknown]
  - Off label use [Unknown]
  - Intentional product use issue [Unknown]

NARRATIVE: CASE EVENT DATE: 20220501
